FAERS Safety Report 7028198-X (Version None)
Quarter: 2010Q3

REPORT INFORMATION
  Report Type: 
  Country: None (occurrence: None)
  Receive Date: 20100930
  Receipt Date: 20100421
  Transmission Date: 20110219
  Serious: Yes (Life-Threatening, Hospitalization)
  Sender: FDA-Public Use
  Company Number: DSA_42928_2010

PATIENT
  Age: 67 Year
  Sex: Male

DRUGS (12)
  1. BUPROPION [Suspect]
     Indication: PRODUCT USED FOR UNKNOWN INDICATION
     Dosage: (DF), (150 MG QD ORAL), (150 MG BID ORAL)
     Route: 048
     Dates: start: 20090101, end: 20090101
  2. CARDIZEM [Suspect]
     Indication: HEART RATE INCREASED
     Dosage: (DF INTRAVENOUS DRIP), (DF ORAL)
     Dates: start: 20090101, end: 20090101
  3. PLAVIX [Suspect]
     Indication: CORONARY ARTERIAL STENT INSERTION
  4. PLAVIX [Suspect]
     Indication: CORONARY ARTERY DISEASE
  5. ANTI-SMOKING AGENTS [Suspect]
     Indication: SMOKING CESSATION THERAPY
     Dosage: (0.5 MG QD ORAL)
     Route: 048
     Dates: start: 20090104, end: 20090108
  6. COUMADIN [Suspect]
     Indication: ATRIAL FIBRILLATION
     Dosage: (DF ORAL)
     Route: 048
  7. LIPITOR [Concomitant]
  8. ASPIRIN [Concomitant]
  9. SIMVASTATIN [Concomitant]
  10. METOPROLOL TARTRATE [Concomitant]
  11. DIGOXIN [Concomitant]
  12. ANTIBIOTICS [Concomitant]

REACTIONS (25)
  - ABNORMAL DREAMS [None]
  - AGITATION [None]
  - ANGER [None]
  - ATRIAL FIBRILLATION [None]
  - CEREBRAL HAEMATOMA [None]
  - CORONARY ARTERY OCCLUSION [None]
  - ELECTROCARDIOGRAM Q WAVE ABNORMAL [None]
  - FIBRIN D DIMER INCREASED [None]
  - GAIT DISTURBANCE [None]
  - HALLUCINATION [None]
  - HEART RATE INCREASED [None]
  - HYPERTENSION [None]
  - HYPOTENSION [None]
  - HYPOTHYROIDISM [None]
  - INSOMNIA [None]
  - INTRACRANIAL ANEURYSM [None]
  - LABORATORY TEST ABNORMAL [None]
  - LUNG INFILTRATION [None]
  - MYOCARDIAL INFARCTION [None]
  - PALPITATIONS [None]
  - PLEURAL EFFUSION [None]
  - PNEUMONIA [None]
  - POOR QUALITY SLEEP [None]
  - RALES [None]
  - UNEVALUABLE EVENT [None]
